FAERS Safety Report 6641654-9 (Version None)
Quarter: 2010Q1

REPORT INFORMATION
  Report Type: 
  Country: None (occurrence: None)
  Receive Date: 20100316
  Receipt Date: 20100122
  Transmission Date: 20100710
  Serious: Yes (Hospitalization)
  Sender: FDA-Public Use
  Company Number: 54973 AE # 216

PATIENT
  Age: 32 Year
  Sex: Female
  Weight: 90.7194 kg

DRUGS (1)
  1. LEG CRAMPS WITH QUININE CAPLETS [Suspect]
     Indication: MUSCLE SPASMS
     Dosage: 2 TABS 2X DAY X 4-5 DAYS

REACTIONS (2)
  - ABDOMINAL PAIN UPPER [None]
  - VOMITING [None]
